FAERS Safety Report 4320680-9 (Version None)
Quarter: 2004Q1

REPORT INFORMATION
  Report Type: 
  Country: None (occurrence: None)
  Receive Date: 20040315
  Receipt Date: 20030522
  Transmission Date: 20041129
  Serious: Yes (Hospitalization)
  Sender: FDA-Public Use
  Company Number: USA030537781

PATIENT
  Sex: Female

DRUGS (3)
  1. GEMZAR [Suspect]
     Indication: DISEASE RECURRENCE
     Dosage: 2400 MG/OTHER
     Route: 050
     Dates: end: 20030501
  2. GEMZAR [Suspect]
     Indication: OVARIAN CANCER
     Dosage: 2400 MG/OTHER
     Route: 050
     Dates: end: 20030501
  3. CARBOPLATIN [Concomitant]

REACTIONS (3)
  - HYPOTRICHOSIS [None]
  - NAUSEA [None]
  - RED BLOOD CELL COUNT DECREASED [None]
